FAERS Safety Report 7136001-2 (Version None)
Quarter: 2010Q4

REPORT INFORMATION
  Report Type: 
  Country: None (occurrence: None)
  Receive Date: 20101204
  Receipt Date: 20101118
  Transmission Date: 20110411
  Serious: Yes (Death, Hospitalization, Other)
  Sender: FDA-Public Use
  Company Number: JP-BAYER-201015874BYL

PATIENT

DRUGS (1)
  1. NEXAVAR [Suspect]
     Route: 048
     Dates: start: 20100820, end: 20101012

REACTIONS (1)
  - CEREBRAL HAEMORRHAGE [None]
